FAERS Safety Report 6489544-9 (Version None)
Quarter: 2009Q4

REPORT INFORMATION
  Report Type: 
  Country: None (occurrence: None)
  Receive Date: 20091210
  Receipt Date: 20091001
  Transmission Date: 20100525
  Serious: No
  Sender: FDA-Public Use
  Company Number: US-AMGEN-KDL367303

PATIENT
  Sex: Female

DRUGS (3)
  1. ENBREL [Suspect]
     Indication: RHEUMATOID ARTHRITIS
     Route: 058
     Dates: start: 20040101
  2. METHOTREXATE [Concomitant]
     Dates: start: 20000101
  3. PLAQUENIL [Concomitant]
     Dates: start: 20000101

REACTIONS (3)
  - ERYTHEMA [None]
  - SKIN ULCER [None]
  - WOUND SECRETION [None]
